FAERS Safety Report 9423669 (Version 1)
Quarter: 2013Q3

REPORT INFORMATION
  Report Type: Report from Study
  Country: US (occurrence: US)
  Receive Date: 20130727
  Receipt Date: 20130727
  Transmission Date: 20140515
  Serious: Yes (Death)
  Sender: FDA-Public Use
  Company Number: US-ROCHE-1253525

PATIENT
  Age: 15 Month
  Sex: Female

DRUGS (3)
  1. RITUXIMAB [Suspect]
     Indication: GLYCOGEN STORAGE DISEASE TYPE II
     Route: 042
  2. METHOTREXATE [Suspect]
     Indication: GLYCOGEN STORAGE DISEASE TYPE II
     Route: 058
  3. IMMUNOGLOBULIN [Suspect]
     Indication: GLYCOGEN STORAGE DISEASE TYPE II
     Dosage: DOSE: 400-500 MG/KG
     Route: 042

REACTIONS (2)
  - Respiratory failure [Fatal]
  - Glycogen storage disease type II [Fatal]
